FAERS Safety Report 11112851 (Version 3)
Quarter: 2015Q3

REPORT INFORMATION
  Report Type: Spontaneous
  Country: US (occurrence: US)
  Receive Date: 20150514
  Receipt Date: 20150707
  Transmission Date: 20151125
  Serious: Yes (Other)
  Sender: FDA-Public Use
  Company Number: US-BAYER-2015-190263

PATIENT
  Age: 28 Year
  Sex: Female
  Weight: 58.5 kg

DRUGS (1)
  1. MIRENA [Suspect]
     Active Substance: LEVONORGESTREL
     Indication: CONTRACEPTION
     Dosage: 20 MCG/24HR, CONT
     Route: 015
     Dates: start: 20150424, end: 20150426

REACTIONS (18)
  - Tremor [None]
  - Vomiting [None]
  - Discomfort [Recovering/Resolving]
  - Device difficult to use [None]
  - Device dislocation [Recovering/Resolving]
  - Abdominal pain lower [None]
  - Off label use of device [None]
  - Pelvic pain [Recovering/Resolving]
  - Feeling abnormal [Recovering/Resolving]
  - Abdominal discomfort [Recovering/Resolving]
  - Device physical property issue [None]
  - Vulvovaginal pain [Recovering/Resolving]
  - Procedural pain [None]
  - Decreased appetite [None]
  - Complication of device insertion [None]
  - Presyncope [None]
  - Device dislocation [Recovering/Resolving]
  - Nausea [None]

NARRATIVE: CASE EVENT DATE: 20150424
